FAERS Safety Report 9278561 (Version 4)
Quarter: 2014Q1

REPORT INFORMATION
  Report Type: Report from Study
  Country: CN (occurrence: CN)
  Receive Date: 20130508
  Receipt Date: 20140320
  Transmission Date: 20141002
  Serious: Yes (Hospitalization)
  Sender: FDA-Public Use
  Company Number: CN-ROCHE-1217852

PATIENT
  Age: 59 Year
  Sex: Female
  Weight: 59 kg

DRUGS (3)
  1. CARBOPLATIN [Suspect]
     Indication: NON-SMALL CELL LUNG CANCER RECURRENT
     Dosage: MOST RECENT DOSE: 03/AUG/2012, LAST DOSE: 530 MG
     Route: 042
     Dates: start: 20130417
  2. PACLITAXEL [Suspect]
     Indication: NON-SMALL CELL LUNG CANCER RECURRENT
     Dosage: MOST RECENT DOSE:03/AUG/2012, LAST DOSE: 280 MG
     Route: 042
     Dates: start: 20120417
  3. BEVACIZUMAB [Suspect]
     Indication: NON-SMALL CELL LUNG CANCER RECURRENT
     Dosage: MOST RECENT DOSE:12/MAR/2013, LAST DOSE 870MG
     Route: 042
     Dates: start: 20120417

REACTIONS (1)
  - Ventricular extrasystoles [Recovered/Resolved]
